FAERS Safety Report 4947717-8 (Version None)
Quarter: 2006Q1

REPORT INFORMATION
  Report Type: 
  Country: None (occurrence: None)
  Receive Date: 20060320
  Receipt Date: 20060308
  Transmission Date: 20060701
  Serious: Yes (Life-Threatening)
  Sender: FDA-Public Use
  Company Number: IT-BRISTOL-MYERS SQUIBB COMPANY-13317961

PATIENT
  Age: 53 Year
  Sex: Female

DRUGS (3)
  1. ERBITUX [Suspect]
     Dosage: REC'D 6 INFUSIONS.
     Dates: start: 20051111, end: 20060215
  2. HYDROCORTISONE [Concomitant]
     Indication: DRUG USE FOR UNKNOWN INDICATION
     Route: 042
  3. RANITIDINE [Concomitant]
     Indication: DRUG USE FOR UNKNOWN INDICATION
     Route: 042

REACTIONS (4)
  - ABDOMINAL PAIN [None]
  - CHEST PAIN [None]
  - CYANOSIS [None]
  - DYSPNOEA [None]
